FAERS Safety Report 4790261-1 (Version None)
Quarter: 2005Q4

REPORT INFORMATION
  Report Type: 
  Country: None (occurrence: None)
  Receive Date: 20051006
  Receipt Date: 20050929
  Transmission Date: 20060501
  Serious: Yes (Other)
  Sender: FDA-Public Use
  Company Number: PHEH2005US10892

PATIENT
  Sex: Female

DRUGS (1)
  1. VOLTAREN [Suspect]

REACTIONS (2)
  - KNEE ARTHROPLASTY [None]
  - OSTEOARTHRITIS [None]
